FAERS Safety Report 13716618 (Version 1)
Quarter: 2017Q3

REPORT INFORMATION
  Report Type: Spontaneous
  Country: JP (occurrence: JP)
  Receive Date: 20170705
  Receipt Date: 20170705
  Transmission Date: 20171127
  Serious: Yes (Hospitalization)
  Sender: FDA-Public Use
  Company Number: PHJP2017JP021693

PATIENT

DRUGS (1)
  1. NEORAL [Suspect]
     Active Substance: CYCLOSPORINE
     Indication: INTERSTITIAL LUNG DISEASE
     Dosage: 3 DF, QD (150 MG)
     Route: 048

REACTIONS (3)
  - Product use in unapproved indication [Unknown]
  - Lung neoplasm malignant [Unknown]
  - Concomitant disease progression [Unknown]
